FAERS Safety Report 4987517-6 (Version None)
Quarter: 2006Q2

REPORT INFORMATION
  Report Type: 
  Country: None (occurrence: None)
  Receive Date: 20060501
  Receipt Date: 20060424
  Transmission Date: 20061013
  Serious: Yes (Hospitalization, Disabling)
  Sender: FDA-Public Use
  Company Number: US-MERCK-0604USA03721

PATIENT
  Age: 59 Year
  Sex: Female
  Weight: 100 kg

DRUGS (10)
  1. VIOXX [Suspect]
     Indication: ARTHRALGIA
     Route: 048
     Dates: start: 20010401, end: 20040901
  2. OGEN [Concomitant]
     Route: 048
  3. AVANDIA [Concomitant]
     Route: 048
  4. ISOSORBIDE MONONITRATE ER [Concomitant]
     Route: 048
  5. TRICOR [Concomitant]
     Route: 048
  6. METOPROLOL [Concomitant]
     Route: 048
  7. PLAVIX [Concomitant]
     Route: 048
  8. PROTONIX [Concomitant]
     Route: 048
  9. KLOR-CON [Concomitant]
     Route: 048
  10. NITROQUICK [Concomitant]
     Route: 065

REACTIONS (1)
  - MYOCARDIAL INFARCTION [None]
